FAERS Safety Report 14646263 (Version 2)
Quarter: 2022Q3

REPORT INFORMATION
  Report Type: Spontaneous
  Country: BR (occurrence: BR)
  Receive Date: 20180316
  Receipt Date: 20220906
  Transmission Date: 20221027
  Serious: Yes (Hospitalization)
  Sender: FDA-Public Use
  Company Number: BR-PFIZER INC-2018047503

PATIENT
  Age: 40 Year
  Sex: Male

DRUGS (5)
  1. ENBREL [Suspect]
     Active Substance: ETANERCEPT
     Indication: Rheumatoid arthritis
     Dosage: UNK
     Route: 065
     Dates: start: 201711
  2. ENBREL [Suspect]
     Active Substance: ETANERCEPT
     Dosage: UNK
     Route: 065
     Dates: start: 2018, end: 2021
  3. METHOTREXATE [Concomitant]
     Active Substance: METHOTREXATE
     Dosage: UNK
     Dates: start: 201711
  4. NAPROXEN [Concomitant]
     Active Substance: NAPROXEN
     Dosage: UNK
     Dates: start: 201711
  5. FOLIC ACID [Concomitant]
     Active Substance: FOLIC ACID
     Dosage: UNK
     Dates: start: 201711

REACTIONS (6)
  - Somnolence [Recovered/Resolved]
  - Fatigue [Recovered/Resolved]
  - Injection site pain [Recovered/Resolved]
  - Libido decreased [Unknown]
  - Injection site bruising [Unknown]
  - Rash macular [Unknown]

NARRATIVE: CASE EVENT DATE: 20180125
